FAERS Safety Report 9787631 (Version 2)
Quarter: 2015Q4

REPORT INFORMATION
  Report Type: Spontaneous
  Country: US (occurrence: US)
  Receive Date: 20131230
  Receipt Date: 20151030
  Transmission Date: 20160305
  Serious: Yes (Hospitalization)
  Sender: FDA-Public Use
  Company Number: US-RANBAXY-2013US-76454

PATIENT
  Age: 8 Month
  Sex: Male

DRUGS (1)
  1. ACETAMINOPHEN. [Suspect]
     Active Substance: ACETAMINOPHEN
     Indication: PAIN MANAGEMENT
     Dosage: UNK
     Route: 065

REACTIONS (4)
  - Acute hepatic failure [Recovering/Resolving]
  - Metabolic acidosis [Recovering/Resolving]
  - Generalised tonic-clonic seizure [Unknown]
  - Toxicity to various agents [Recovering/Resolving]
